FAERS Safety Report 10557234 (Version 1)
Quarter: 2014Q4

REPORT INFORMATION
  Report Type: Spontaneous
  Country: US (occurrence: None)
  Receive Date: 20141030
  Receipt Date: 20141030
  Transmission Date: 20150529
  Serious: No
  Sender: FDA-Public Use
  Company Number: None

PATIENT
  Age: 64 Year
  Sex: Male
  Weight: 88.45 kg

DRUGS (2)
  1. OMEPRAZOLE. [Suspect]
     Active Substance: OMEPRAZOLE
     Indication: GASTROOESOPHAGEAL REFLUX DISEASE
     Dosage: TAKEN BY MOUTH
     Dates: start: 20140917, end: 20141017
  2. OMEPRAZOLE. [Suspect]
     Active Substance: OMEPRAZOLE
     Indication: DYSPEPSIA
     Dosage: TAKEN BY MOUTH
     Dates: start: 20140917, end: 20141017

REACTIONS (7)
  - Reflux gastritis [None]
  - Dyspepsia [None]
  - Product substitution issue [None]
  - Product label issue [None]
  - Disease recurrence [None]
  - Drug ineffective [None]
  - Product quality issue [None]

NARRATIVE: CASE EVENT DATE: 20141017
